FAERS Safety Report 8367399-5 (Version None)
Quarter: 2012Q2

REPORT INFORMATION
  Report Type: 
  Country: None (occurrence: None)
  Receive Date: 20120517
  Receipt Date: 20120515
  Transmission Date: 20120825
  Serious: Yes (Hospitalization, Other)
  Sender: FDA-Public Use
  Company Number: US-MERCK-1111USA02486

PATIENT
  Age: 71 Year
  Sex: Female

DRUGS (1)
  1. FOSAMAX [Suspect]
     Route: 048
     Dates: start: 20040101, end: 20070101

REACTIONS (4)
  - DENTAL CARIES [None]
  - LOOSE TOOTH [None]
  - OSTEONECROSIS OF JAW [None]
  - FEMUR FRACTURE [None]
